FAERS Safety Report 23820219 (Version 1)
Quarter: 2024Q2

REPORT INFORMATION
  Report Type: Spontaneous
  Country: FR (occurrence: FR)
  Receive Date: 20240506
  Receipt Date: 20240506
  Transmission Date: 20240716
  Serious: Yes (Hospitalization)
  Sender: FDA-Public Use
  Company Number: None

PATIENT
  Age: 14 Year
  Sex: Male
  Weight: 71 kg

DRUGS (1)
  1. METHOTREXATE [Suspect]
     Active Substance: METHOTREXATE
     Indication: Precursor B-lymphoblastic lymphoma
     Dosage: TIME INTERVAL: TOTAL: 7660 MGX1/TOTAL: METHOTREXATE TEVA
     Route: 042
     Dates: start: 20240315, end: 20240316

REACTIONS (2)
  - Renal failure [Recovered/Resolved]
  - Chemotherapeutic drug level above therapeutic [Recovered/Resolved]

NARRATIVE: CASE EVENT DATE: 20240316
